FAERS Safety Report 5682211-0 (Version None)
Quarter: 2008Q1

REPORT INFORMATION
  Report Type: 
  Country: None (occurrence: None)
  Receive Date: 20080327
  Receipt Date: 20080327
  Transmission Date: 20080703
  Serious: Yes (Life-Threatening)
  Sender: FDA-Public Use
  Company Number: None

PATIENT
  Age: 65 Year
  Sex: Female
  Weight: 98.4306 kg

DRUGS (1)
  1. HEPARIN [Suspect]
     Indication: PREOPERATIVE CARE
     Dosage: 30,000 UNITS BOLUS IV BOLUS; ONE TIME DOSE
     Route: 040
     Dates: start: 20080318, end: 20080318

REACTIONS (1)
  - HYPOTENSION [None]
